FAERS Safety Report 9628126 (Version 1)
Quarter: 2013Q4

REPORT INFORMATION
  Report Type: Spontaneous
  Country: US (occurrence: US)
  Receive Date: 20131017
  Receipt Date: 20131017
  Transmission Date: 20140711
  Serious: No
  Sender: FDA-Public Use
  Company Number: US-B.I. PHARMACEUTICALS,INC./RIDGEFIELD-2013-BI-31503BP

PATIENT
  Age: 77 Year
  Sex: Male
  Weight: 113 kg

DRUGS (6)
  1. PRADAXA [Suspect]
     Indication: ATRIAL FIBRILLATION
     Dosage: 300 MG
     Route: 048
     Dates: start: 201308
  2. PRIMIDONE [Concomitant]
     Indication: ESSENTIAL TREMOR
     Dosage: 100 MG
     Route: 048
  3. TRAZADONE [Concomitant]
     Indication: INSOMNIA
     Dosage: 75 MG
     Route: 048
  4. OMEPRAZOLE [Concomitant]
     Indication: GASTROOESOPHAGEAL REFLUX DISEASE
     Dosage: 20 MG
     Route: 048
  5. LISINOPRIL [Concomitant]
     Indication: HYPERTENSION
     Dosage: 40 MG
     Route: 048
  6. MONTELUKAST [Concomitant]
     Indication: ASTHMA
     Dosage: 10 MG
     Route: 048

REACTIONS (1)
  - Essential tremor [Not Recovered/Not Resolved]
